FAERS Safety Report 21800677 (Version 1)
Quarter: 2022Q4

REPORT INFORMATION
  Report Type: Spontaneous
  Country: HR (occurrence: HR)
  Receive Date: 20221230
  Receipt Date: 20221230
  Transmission Date: 20230113
  Serious: Yes (Other)
  Sender: FDA-Public Use
  Company Number: None

PATIENT
  Age: 57 Year
  Sex: Female
  Weight: 85 kg

DRUGS (1)
  1. QUETIAPINE [Suspect]
     Active Substance: QUETIAPINE
     Indication: Product used for unknown indication
     Dosage: 10 TBL
     Dates: start: 20221125, end: 20221125

REACTIONS (7)
  - Pyrexia [Unknown]
  - Tachycardia [Unknown]
  - Pneumonia [Unknown]
  - Somnolence [Unknown]
  - Suicide attempt [Unknown]
  - Oxygen saturation decreased [Unknown]
  - Intentional overdose [Unknown]

NARRATIVE: CASE EVENT DATE: 20221125
